FAERS Safety Report 8825498 (Version 1)
Quarter: 2012Q4

REPORT INFORMATION
  Report Type: 
  Country: CN (occurrence: CN)
  Receive Date: 20121004
  Receipt Date: 20121004
  Transmission Date: 20130627
  Serious: Yes (Other)
  Sender: FDA-Public Use
  Company Number: CN-JNJFOC-20120912696

PATIENT
  Sex: Male

DRUGS (1)
  1. TYLENOL COLD [Suspect]
     Indication: NASOPHARYNGITIS
     Route: 048
     Dates: start: 20090226, end: 20090227

REACTIONS (2)
  - Guillain-Barre syndrome [Recovering/Resolving]
  - Overdose [Unknown]
